FAERS Safety Report 8459915-X (Version None)
Quarter: 2012Q2

REPORT INFORMATION
  Report Type: 
  Country: None (occurrence: None)
  Receive Date: 20120622
  Receipt Date: 20120619
  Transmission Date: 20120825
  Serious: No
  Sender: FDA-Public Use
  Company Number: PHEH2012US012311

PATIENT
  Sex: Female
  Weight: 71.655 kg

DRUGS (6)
  1. TASIGNA [Suspect]
     Dosage: 300 MG, BID
     Route: 048
     Dates: start: 20120522
  2. TASIGNA [Suspect]
     Dosage: 300 MG AM AND 150 MG PM
     Route: 048
  3. IBUPROFEN [Concomitant]
  4. SIMVASTATIN [Concomitant]
  5. CELEXA [Concomitant]
  6. XANAX [Concomitant]

REACTIONS (1)
  - PRURITUS [None]
